FAERS Safety Report 5671935-7 (Version None)
Quarter: 2008Q1

REPORT INFORMATION
  Report Type: 
  Country: None (occurrence: None)
  Receive Date: 20080319
  Receipt Date: 20080306
  Transmission Date: 20080703
  Serious: Yes (Hospitalization, Other)
  Sender: FDA-Public Use
  Company Number: US-JNJFOC-20080302395

PATIENT
  Sex: Female
  Weight: 83.46 kg

DRUGS (6)
  1. DURAGESIC-100 [Suspect]
     Route: 062
  2. DURAGESIC-100 [Suspect]
     Route: 062
  3. DURAGESIC-100 [Suspect]
     Indication: PAIN
     Route: 062
  4. DURAGESIC-100 [Suspect]
     Indication: OSTEOARTHRITIS
     Route: 062
  5. TENORMIN [Concomitant]
     Route: 048
  6. ASPIRIN [Concomitant]
     Route: 048

REACTIONS (10)
  - ARTERIAL OCCLUSIVE DISEASE [None]
  - DRUG INEFFECTIVE [None]
  - FEELING ABNORMAL [None]
  - PANIC ATTACK [None]
  - PHARMACEUTICAL PRODUCT COMPLAINT [None]
  - THERAPEUTIC RESPONSE UNEXPECTED [None]
  - THERAPY CESSATION [None]
  - ULCER HAEMORRHAGE [None]
  - WEIGHT DECREASED [None]
  - WITHDRAWAL SYNDROME [None]
